FAERS Safety Report 5318983-4 (Version None)
Quarter: 2007Q1

REPORT INFORMATION
  Report Type: 
  Country: None (occurrence: None)
  Receive Date: 20070202
  Receipt Date: 20060426
  Transmission Date: 20070707
  Serious: Yes (Hospitalization)
  Sender: FDA-Public Use
  Company Number: 250397

PATIENT
  Age: 43 Year
  Sex: Male
  Weight: 76.2 kg

DRUGS (5)
  1. NOVOLOG [Suspect]
     Indication: DIABETES MELLITUS INSULIN-DEPENDENT
     Dosage: 1 UNIT PER 15 CARBOHYDRATES + SLIDING SCALE, SUBCUTANEOUS
     Route: 058
     Dates: start: 20040101
  2. LISINOPRIL [Concomitant]
  3. LIPITOR /NET/ (ATORVASTATIN CALCIUM) [Concomitant]
  4. MULTI-VITAMINS [Concomitant]
  5. ASPIRIN [Concomitant]

REACTIONS (1)
  - DIABETIC KETOACIDOSIS [None]
